FAERS Safety Report 6386350-0 (Version None)
Quarter: 2009Q3

REPORT INFORMATION
  Report Type: 
  Country: None (occurrence: None)
  Receive Date: 20090930
  Receipt Date: 20090930
  Transmission Date: 20100115
  Serious: Yes (Other)
  Sender: FDA-Public Use
  Company Number: None

PATIENT
  Age: 39 Year
  Sex: Female
  Weight: 52.1637 kg

DRUGS (6)
  1. CYMBALTA [Suspect]
     Indication: ANXIETY
     Dosage: 1 CAPSULE EVERY MORNING PO
     Route: 048
     Dates: start: 20090130, end: 20090730
  2. CYMBALTA [Suspect]
     Indication: DEPRESSION
     Dosage: 1 CAPSULE EVERY MORNING PO
     Route: 048
     Dates: start: 20090130, end: 20090730
  3. CYMBALTA [Suspect]
     Indication: POSTPARTUM DISORDER
     Dosage: 1 CAPSULE EVERY MORNING PO
     Route: 048
     Dates: start: 20090130, end: 20090730
  4. CYMBALTA [Suspect]
     Indication: ANXIETY
     Dosage: 1 CAPSULE EVERY MORNING PO
     Route: 048
     Dates: start: 20090820, end: 20090913
  5. CYMBALTA [Suspect]
     Indication: DEPRESSION
     Dosage: 1 CAPSULE EVERY MORNING PO
     Route: 048
     Dates: start: 20090820, end: 20090913
  6. CYMBALTA [Suspect]
     Indication: POSTPARTUM DISORDER
     Dosage: 1 CAPSULE EVERY MORNING PO
     Route: 048
     Dates: start: 20090820, end: 20090913

REACTIONS (13)
  - AGITATION [None]
  - ANXIETY [None]
  - DIARRHOEA [None]
  - DISTURBANCE IN ATTENTION [None]
  - DIZZINESS [None]
  - DRUG DOSE OMISSION [None]
  - FATIGUE [None]
  - HEADACHE [None]
  - NAUSEA [None]
  - NIGHTMARE [None]
  - VERTIGO [None]
  - VISUAL IMPAIRMENT [None]
  - VOMITING [None]
